FAERS Safety Report 9931835 (Version 1)
Quarter: 2014Q1

REPORT INFORMATION
  Report Type: Spontaneous
  Country: AU (occurrence: None)
  Receive Date: 20140226
  Receipt Date: 20140226
  Transmission Date: 20141002
  Serious: Yes (Death)
  Sender: FDA-Public Use
  Company Number: ABR_01502_2014

PATIENT
  Age: 77 Year
  Sex: Male

DRUGS (26)
  1. EES [Suspect]
     Indication: PRODUCT USED FOR UNKNOWN INDICATION
  2. PHYSIOTENS [Suspect]
     Indication: PRODUCT USED FOR UNKNOWN INDICATION
  3. ACTONEL [Suspect]
     Indication: PRODUCT USED FOR UNKNOWN INDICATION
  4. AUGMENTIN DUO [Suspect]
     Indication: PRODUCT USED FOR UNKNOWN INDICATION
  5. CECLOR CD [Suspect]
     Indication: PRODUCT USED FOR UNKNOWN INDICATION
  6. CHAMPIX [Suspect]
     Indication: PRODUCT USED FOR UNKNOWN INDICATION
  7. CRAMPEZE NIGHT CRAMPS- MULTIVITAMINS AND MINERALS [Suspect]
     Indication: PRODUCT USED FOR UNKNOWN INDICATION
  8. KARVEZIDE [Suspect]
     Indication: PRODUCT USED FOR UNKNOWN INDICATION
  9. LIPITOR [Suspect]
     Indication: PRODUCT USED FOR UNKNOWN INDICATION
  10. LIQUIFILM TEARS LIQUIFILM TEARS- POLYVINYL ALCOHOL) (NOT SPECIFIED) [Suspect]
     Indication: PRODUCT USED FOR UNKNOWN INDICATION
  11. MAREVAN [Suspect]
     Indication: PRODUCT USED FOR UNKNOWN INDICATION
  12. MAXIDEX [Suspect]
     Indication: PRODUCT USED FOR UNKNOWN INDICATION
  13. MINIPRESS [Suspect]
     Indication: PRODUCT USED FOR UNKNOWN INDICATION
  14. NORVASC (NORVASC- AMLODIPINE) (NOT SPECIFIED) [Suspect]
     Indication: PRODUCT USED FOR UNKNOWN INDICATION
  15. NOTEN [Suspect]
     Indication: PRODUCT USED FOR UNKNOWN INDICATION
  16. PANADOL [Suspect]
     Indication: PRODUCT USED FOR UNKNOWN INDICATION
  17. PANAFCORT [Suspect]
     Indication: PRODUCT USED FOR UNKNOWN INDICATION
  18. PANAMAX [Suspect]
     Indication: PRODUCT USED FOR UNKNOWN INDICATION
  19. PRADAXA [Suspect]
     Indication: PRODUCT USED FOR UNKNOWN INDICATION
  20. QUINATE (QUININE) [Suspect]
     Indication: PRODUCT USED FOR UNKNOWN INDICATION
  21. RULIDE [Suspect]
     Indication: PRODUCT USED FOR UNKNOWN INDICATION
  22. SERETIDE [Suspect]
     Indication: PRODUCT USED FOR UNKNOWN INDICATION
     Route: 055
  23. SOMAC [Suspect]
     Indication: PRODUCT USED FOR UNKNOWN INDICATION
  24. SPIRIVA [Suspect]
     Indication: PRODUCT USED FOR UNKNOWN INDICATION
  25. TEMAZE [Suspect]
     Indication: PRODUCT USED FOR UNKNOWN INDICATION
  26. VENTOLIN [Suspect]
     Indication: PRODUCT USED FOR UNKNOWN INDICATION

REACTIONS (1)
  - Pneumonia [None]
